FAERS Safety Report 7410142-4 (Version None)
Quarter: 2011Q2

REPORT INFORMATION
  Report Type: 
  Country: None (occurrence: None)
  Receive Date: 20110412
  Receipt Date: 20110405
  Transmission Date: 20111010
  Serious: Yes (Other)
  Sender: FDA-Public Use
  Company Number: US-KINGPHARMUSA00001-K201100423

PATIENT
  Age: 7 Year
  Sex: Male
  Weight: 23.583 kg

DRUGS (1)
  1. EPIPEN [Suspect]
     Indication: HYPERSENSITIVITY
     Dosage: 0.3 MG, SINGLE
     Route: 030
     Dates: start: 20110405, end: 20110405

REACTIONS (2)
  - INJECTION SITE INJURY [None]
  - INJECTION SITE PAIN [None]
